FAERS Safety Report 9397534 (Version 3)
Quarter: 2013Q3

REPORT INFORMATION
  Report Type: Spontaneous
  Country: JP (occurrence: JP)
  Receive Date: 20130712
  Receipt Date: 20130805
  Transmission Date: 20140515
  Serious: Yes (Death)
  Sender: FDA-Public Use
  Company Number: JP-SANOFI-AVENTIS-2013SA068419

PATIENT
  Age: 80 Year
  Sex: Male
  Weight: 54.2 kg

DRUGS (4)
  1. TAXOTERE [Suspect]
     Indication: OROPHARYNGEAL CANCER
     Dosage: DOSE: 16 MG/BODY
     Route: 042
     Dates: start: 20130410, end: 20130523
  2. DECADRON [Concomitant]
     Indication: OROPHARYNGEAL CANCER
  3. LOXOPROFEN SODIUM [Concomitant]
  4. VOLTAREN [Concomitant]
     Dosage: SUPPOSITORY

REACTIONS (7)
  - Interstitial lung disease [Fatal]
  - Dyspnoea [Fatal]
  - Cough [Fatal]
  - Productive cough [Fatal]
  - Haemoptysis [Fatal]
  - Tachypnoea [Fatal]
  - Restlessness [Fatal]
